FAERS Safety Report 7061066-6 (Version None)
Quarter: 2010Q4

REPORT INFORMATION
  Report Type: 
  Country: None (occurrence: None)
  Receive Date: 20101026
  Receipt Date: 20101018
  Transmission Date: 20110411
  Serious: Yes (Other)
  Sender: FDA-Public Use
  Company Number: US-PFIZER INC-2010132657

PATIENT
  Sex: Female
  Weight: 113 kg

DRUGS (2)
  1. CHANTIX [Suspect]
     Indication: SMOKING CESSATION THERAPY
     Route: 048
     Dates: start: 20100701, end: 20101001
  2. SERTRALINE HYDROCHLORIDE [Suspect]

REACTIONS (2)
  - DEPRESSED MOOD [None]
  - WITHDRAWAL SYNDROME [None]
